FAERS Safety Report 18490810 (Version 1)
Quarter: 2020Q4

REPORT INFORMATION
  Report Type: Spontaneous
  Country: US (occurrence: US)
  Receive Date: 20201111
  Receipt Date: 20201111
  Transmission Date: 20210114
  Serious: Yes (Hospitalization)
  Sender: FDA-Public Use
  Company Number: NVSC2020US298526

PATIENT
  Age: 41 Year
  Sex: Female

DRUGS (4)
  1. ONDANSETRON [Suspect]
     Active Substance: ONDANSETRON
     Indication: VOMITING
  2. KETOROLAC [Concomitant]
     Active Substance: KETOROLAC TROMETHAMINE
     Indication: ABDOMINAL PAIN UPPER
     Dosage: 30 MG IV
     Route: 042
  3. MAGNESIUM SULFATE. [Concomitant]
     Active Substance: MAGNESIUM SULFATE
     Indication: PRODUCT USED FOR UNKNOWN INDICATION
     Dosage: 2 G IV
     Route: 042
  4. ONDANSETRON [Suspect]
     Active Substance: ONDANSETRON
     Indication: NAUSEA
     Dosage: 4 MG IV
     Route: 042

REACTIONS (4)
  - Cardiac arrest [Unknown]
  - Ventricular extrasystoles [Unknown]
  - Electrocardiogram QT interval [Unknown]
  - Torsade de pointes [Unknown]
